FAERS Safety Report 6411787-0 (Version None)
Quarter: 2009Q4

REPORT INFORMATION
  Report Type: 
  Country: None (occurrence: None)
  Receive Date: 20091020
  Receipt Date: 20091008
  Transmission Date: 20100525
  Serious: Yes (Hospitalization, Disabling, Other)
  Sender: FDA-Public Use
  Company Number: 2009-00248

PATIENT
  Age: 78 Year
  Sex: Male
  Weight: 76.2 kg

DRUGS (3)
  1. VELCADE [Suspect]
     Indication: MULTIPLE MYELOMA
     Dosage: 2.4 MG/M2
     Dates: start: 20081010
  2. DECADRON [Concomitant]
  3. ZOFRAN [Concomitant]

REACTIONS (11)
  - ASTHENIA [None]
  - ATONIC URINARY BLADDER [None]
  - DEMYELINATING POLYNEUROPATHY [None]
  - FALL [None]
  - HYPONATRAEMIA [None]
  - NEUROPATHY PERIPHERAL [None]
  - PAIN [None]
  - PLATELET COUNT DECREASED [None]
  - URINARY RETENTION [None]
  - URINARY TRACT DISORDER [None]
  - URINARY TRACT INFECTION [None]
